FAERS Safety Report 14141155 (Version 2)
Quarter: 2018Q2

REPORT INFORMATION
  Report Type: Spontaneous
  Country: US (occurrence: US)
  Receive Date: 20171030
  Receipt Date: 20180525
  Transmission Date: 20180711
  Serious: Yes (Other)
  Sender: FDA-Public Use
  Company Number: US-PFIZER INC-2017465778

PATIENT
  Age: 58 Year
  Sex: Female
  Weight: 69.39 kg

DRUGS (8)
  1. SYNTHROID [Concomitant]
     Active Substance: LEVOTHYROXINE SODIUM
     Indication: HYPOTHYROIDISM
     Dosage: UNK, 1X/DAY (75 ER IN MORNING)
  2. AMLODIPINE [Concomitant]
     Active Substance: AMLODIPINE BESYLATE
     Indication: HYPERTENSION
     Dosage: 10 MG, UNK
  3. LYRICA [Interacting]
     Active Substance: PREGABALIN
     Indication: ANXIETY
     Dosage: 200 MG, 3X/DAY
  4. LYRICA [Interacting]
     Active Substance: PREGABALIN
     Indication: DRUG EFFECT DECREASED
     Dosage: TITRATED FROM 50 MG TO 150 MG
  5. KLONOPIN [Interacting]
     Active Substance: CLONAZEPAM
     Indication: ANXIETY
     Dosage: 1 MG, 2X/DAY
  6. EFFEXOR XR [Concomitant]
     Active Substance: VENLAFAXINE HYDROCHLORIDE
     Dosage: UNK (75 ER  IN MORNING)
  7. LYRICA [Suspect]
     Active Substance: PREGABALIN
     Indication: FIBROMYALGIA
     Dosage: 400 MG, 2X/DAY
     Dates: start: 2007
  8. KLONOPIN [Interacting]
     Active Substance: CLONAZEPAM
     Indication: SLEEP DISORDER
     Dosage: 0.5 MG, 2X/DAY

REACTIONS (17)
  - Partial seizures [Unknown]
  - Cognitive disorder [Not Recovered/Not Resolved]
  - Drug ineffective [Unknown]
  - Personality change [Unknown]
  - Delirium [Unknown]
  - Weight increased [Unknown]
  - Vision blurred [Not Recovered/Not Resolved]
  - Blood cholesterol increased [Unknown]
  - Vomiting [Not Recovered/Not Resolved]
  - Decreased appetite [Not Recovered/Not Resolved]
  - Visual impairment [Not Recovered/Not Resolved]
  - Confusional state [Unknown]
  - Central obesity [Unknown]
  - Panic attack [Unknown]
  - Drug interaction [Unknown]
  - Aspartate aminotransferase increased [Unknown]
  - Disorientation [Unknown]

NARRATIVE: CASE EVENT DATE: 2007
